FAERS Safety Report 7407972-1 (Version None)
Quarter: 2011Q2

REPORT INFORMATION
  Report Type: 
  Country: None (occurrence: None)
  Receive Date: 20110412
  Receipt Date: 20110406
  Transmission Date: 20111010
  Serious: No
  Sender: FDA-Public Use
  Company Number: US-PFIZER INC-2011076980

PATIENT
  Sex: Male

DRUGS (2)
  1. TIKOSYN [Suspect]
     Indication: ATRIAL FLUTTER
     Dosage: 250 UG, 2X/DAY
  2. TIKOSYN [Suspect]
     Dosage: 125 UG, 2X/DAY

REACTIONS (3)
  - CHEST DISCOMFORT [None]
  - BLOOD PRESSURE INCREASED [None]
  - HEART RATE DECREASED [None]
